FAERS Safety Report 15615489 (Version 1)
Quarter: 2018Q4

REPORT INFORMATION
  Report Type: Report from Study
  Country: US (occurrence: US)
  Receive Date: 20181114
  Receipt Date: 20181114
  Transmission Date: 20190205
  Serious: Yes (Other)
  Sender: FDA-Public Use
  Company Number: US-BIOGEN-2018BI00657899

PATIENT
  Sex: Female

DRUGS (1)
  1. TECFIDERA [Suspect]
     Active Substance: DIMETHYL FUMARATE
     Indication: MULTIPLE SCLEROSIS
     Dosage: MAINTENANCE
     Route: 048
     Dates: start: 20181003

REACTIONS (7)
  - Agitation [Unknown]
  - Atrial fibrillation [Unknown]
  - Facial paralysis [Unknown]
  - Nasopharyngitis [Not Recovered/Not Resolved]
  - Nausea [Unknown]
  - Speech disorder [Not Recovered/Not Resolved]
  - Vomiting [Unknown]
